FAERS Safety Report 8579601-5 (Version None)
Quarter: 2012Q3

REPORT INFORMATION
  Report Type: 
  Country: None (occurrence: None)
  Receive Date: 20120808
  Receipt Date: 20120731
  Transmission Date: 20120928
  Serious: Yes (Other)
  Sender: FDA-Public Use
  Company Number: US-JNJFOC-20120707078

PATIENT
  Sex: Male
  Weight: 65.77 kg

DRUGS (7)
  1. VISINE EYE DROPS [Suspect]
     Indication: OCULAR HYPERAEMIA
     Dosage: 1-2 DROPS IN LEFT EYE
     Route: 047
     Dates: start: 20120624, end: 20120627
  2. VISINE EYE DROPS [Suspect]
     Indication: FOREIGN BODY SENSATION IN EYES
     Dosage: 1-2 DROPS IN LEFT EYE
     Route: 047
     Dates: start: 20120624, end: 20120627
  3. CRESTOR [Concomitant]
     Indication: BLOOD CHOLESTEROL
     Route: 065
  4. TRICOR [Concomitant]
     Indication: BLOOD CHOLESTEROL
     Route: 065
  5. BUPROPION HCL [Concomitant]
     Indication: DEPRESSION
     Route: 065
  6. POLYTRIM [Suspect]
     Indication: CONJUNCTIVITIS INFECTIVE
     Dosage: 2 DROPS EVERY 2-4 HOURS
     Route: 065
     Dates: start: 20120625, end: 20120703
  7. FISH OIL [Concomitant]
     Indication: MEDICAL DIET
     Route: 065

REACTIONS (2)
  - EYE INFECTION FUNGAL [None]
  - EXPIRED DRUG ADMINISTERED [None]
